FAERS Safety Report 13042202 (Version 1)
Quarter: 2016Q4

REPORT INFORMATION
  Report Type: Spontaneous
  Country: US (occurrence: US)
  Receive Date: 20161219
  Receipt Date: 20161219
  Transmission Date: 20170207
  Serious: No
  Sender: FDA-Public Use
  Company Number: US-PFIZER INC-2016586585

PATIENT
  Age: 65 Year
  Sex: Female
  Weight: 72 kg

DRUGS (2)
  1. FULVESTRANT [Concomitant]
     Active Substance: FULVESTRANT
     Indication: BREAST CANCER
     Dosage: UNK
     Dates: start: 20160818
  2. IBRANCE [Suspect]
     Active Substance: PALBOCICLIB
     Indication: BREAST CANCER
     Dosage: 100 MG, CYCLIC, ^100MG, 1 CAPSULE BY MOUTH DAILY FOR 21 DAYS, AND THEN OFF FOR 7 DAYS^
     Route: 048
     Dates: start: 20160919

REACTIONS (2)
  - Platelet count decreased [Unknown]
  - Neutrophil count decreased [Unknown]
